FAERS Safety Report 5405317-X (Version None)
Quarter: 2007Q3

REPORT INFORMATION
  Report Type: 
  Country: None (occurrence: None)
  Receive Date: 20070803
  Receipt Date: 20070726
  Transmission Date: 20080115
  Serious: Yes (Other)
  Sender: FDA-Public Use
  Company Number: B0481888A

PATIENT
  Age: 55 Year
  Sex: Female

DRUGS (4)
  1. PAROXETINE HCL [Suspect]
     Indication: DEPRESSION
     Dosage: 20MG PER DAY
     Route: 048
     Dates: start: 20070401, end: 20070719
  2. KETUM [Suspect]
     Indication: INTERVERTEBRAL DISC PROTRUSION
     Dosage: 400MG PER DAY
     Route: 048
     Dates: start: 20061201, end: 20070719
  3. LAROXYL [Concomitant]
  4. HAVLANE [Concomitant]

REACTIONS (4)
  - HAEMATOCHEZIA [None]
  - HAEMATOMA [None]
  - LEUKOPENIA [None]
  - NEUTROPENIA [None]
